FAERS Safety Report 8391083-5 (Version None)
Quarter: 2012Q1

REPORT INFORMATION
  Report Type: 
  Country: None (occurrence: None)
  Receive Date: 20120323
  Receipt Date: 20110418
  Transmission Date: 20120608
  Serious: Yes (Hospitalization, Other)
  Sender: FDA-Public Use
  Company Number: 163-21880-11042393

PATIENT
  Age: 86 Year
  Sex: Female

DRUGS (9)
  1. LEVOTHYROXINE SODIUM [Concomitant]
  2. CARVEDILOL [Concomitant]
  3. MIRTAZAPINE [Concomitant]
  4. ALLOPURINOL [Concomitant]
  5. SIMVASTATIN [Concomitant]
  6. REVLIMID [Suspect]
     Indication: MYELODYSPLASTIC SYNDROME
     Dosage: 5 MG, X 11, PO
     Route: 048
     Dates: start: 20090601
  7. GLYBURIDE [Concomitant]
  8. METFFORMIN HYDROCHLORIDE [Concomitant]
  9. FUROSEMIDE [Concomitant]

REACTIONS (2)
  - URINARY TRACT INFECTION [None]
  - FATIGUE [None]
